FAERS Safety Report 8256360-7 (Version None)
Quarter: 2012Q2

REPORT INFORMATION
  Report Type: 
  Country: None (occurrence: None)
  Receive Date: 20120402
  Receipt Date: 20120402
  Transmission Date: 20120825
  Serious: Yes (Other)
  Sender: FDA-Public Use
  Company Number: None

PATIENT
  Sex: Female
  Weight: 113.8529 kg

DRUGS (2)
  1. FENTANYL-100 [Suspect]
     Indication: ABDOMINAL PAIN
     Dosage: 50MCG Q 72 HOURS TRANSDERMAL
     Route: 062
     Dates: start: 20100914
  2. FENTANYL-100 [Suspect]
     Indication: NEOPLASM MALIGNANT
     Dosage: 50MCG Q 72 HOURS TRANSDERMAL
     Route: 062
     Dates: start: 20120327

REACTIONS (3)
  - APPLICATION SITE PAIN [None]
  - APPLICATION SITE ERYTHEMA [None]
  - APPLICATION SITE EROSION [None]
